FAERS Safety Report 5595352-3 (Version None)
Quarter: 2008Q1

REPORT INFORMATION
  Report Type: 
  Country: None (occurrence: None)
  Receive Date: 20080117
  Receipt Date: 20080110
  Transmission Date: 20080703
  Serious: Yes (Other)
  Sender: FDA-Public Use
  Company Number: SE-PFIZER INC-2008003559

PATIENT
  Sex: Male

DRUGS (5)
  1. VIAGRA [Suspect]
     Indication: PROSTATISM
     Route: 048
  2. TIPAROL [Suspect]
     Indication: PROSTATISM
     Route: 048
  3. VESICARE [Suspect]
     Indication: PROSTATISM
     Route: 048
  4. XATRAL OD [Suspect]
     Indication: PROSTATISM
     Route: 048
  5. CIALIS [Suspect]
     Indication: PROSTATISM
     Route: 048

REACTIONS (1)
  - GLAUCOMA [None]
